FAERS Safety Report 13936322 (Version 1)
Quarter: 2017Q3

REPORT INFORMATION
  Report Type: Spontaneous
  Country: US (occurrence: US)
  Receive Date: 20170905
  Receipt Date: 20170905
  Transmission Date: 20171127
  Serious: Yes (Other)
  Sender: FDA-Public Use
  Company Number: None

PATIENT
  Age: 75 Year
  Sex: Male
  Weight: 119.25 kg

DRUGS (16)
  1. MULTIVITAMIN [Concomitant]
     Active Substance: VITAMINS
  2. ALLOPURINOL. [Concomitant]
     Active Substance: ALLOPURINOL
  3. NORVASC [Concomitant]
     Active Substance: AMLODIPINE BESYLATE
  4. GERI=KOT [Concomitant]
  5. LISINOPRIL. [Concomitant]
     Active Substance: LISINOPRIL
  6. INDAPAMIDE. [Concomitant]
     Active Substance: INDAPAMIDE
  7. TRIAMCINOLONE ACETODINE [Concomitant]
  8. HYDROCORTISONE. [Concomitant]
     Active Substance: HYDROCORTISONE
  9. FINASTERIDE. [Concomitant]
     Active Substance: FINASTERIDE
  10. DOC Q LAX [Concomitant]
  11. NAPROXEN. [Concomitant]
     Active Substance: NAPROXEN
  12. ZOCOR [Concomitant]
     Active Substance: SIMVASTATIN
  13. PREDNISONE. [Concomitant]
     Active Substance: PREDNISONE
  14. ZYTIGA [Suspect]
     Active Substance: ABIRATERONE ACETATE
     Indication: PROSTATE CANCER
     Route: 048
     Dates: start: 20170616, end: 20170905
  15. ZOLEDRONIC ACID. [Concomitant]
     Active Substance: ZOLEDRONIC ACID
  16. OMEPRAZOLE. [Concomitant]
     Active Substance: OMEPRAZOLE

REACTIONS (1)
  - Disease progression [None]
